FAERS Safety Report 19088715 (Version 1)
Quarter: 2021Q2

REPORT INFORMATION
  Report Type: Report from Study
  Country: None (occurrence: MX)
  Receive Date: 20210403
  Receipt Date: 20210403
  Transmission Date: 20210717
  Serious: Yes (Death, Hospitalization)
  Sender: FDA-Public Use
  Company Number: MX-ABBVIE-21K-107-3843551-00

PATIENT
  Age: 65 Year
  Sex: Male

DRUGS (1)
  1. HUMIRA [Suspect]
     Active Substance: ADALIMUMAB
     Indication: ANKYLOSING SPONDYLITIS
     Route: 058

REACTIONS (6)
  - Hypertension [Fatal]
  - Myocardial infarction [Recovered/Resolved]
  - Malaise [Unknown]
  - Vomiting [Unknown]
  - Headache [Unknown]
  - Myocardial infarction [Fatal]

NARRATIVE: CASE EVENT DATE: 202102
